FAERS Safety Report 4775591-1 (Version None)
Quarter: 2005Q3

REPORT INFORMATION
  Report Type: 
  Country: None (occurrence: None)
  Receive Date: 20050914
  Receipt Date: 20041206
  Transmission Date: 20060218
  Serious: Yes (Hospitalization)
  Sender: FDA-Public Use
  Company Number: 163-20785-04120157

PATIENT
  Age: 20 Year
  Sex: Male

DRUGS (5)
  1. THALOMID [Suspect]
     Indication: COLITIS ULCERATIVE
     Dosage: 200 MG, DAILY, ORAL
     Route: 048
  2. WELLBUTRIN [Concomitant]
  3. BACTRIM [Concomitant]
  4. COUMADIN [Concomitant]
  5. HEPARIN [Concomitant]

REACTIONS (2)
  - PANCYTOPENIA [None]
  - PULMONARY EMBOLISM [None]
